FAERS Safety Report 6762812-9 (Version None)
Quarter: 2010Q2

REPORT INFORMATION
  Report Type: 
  Country: None (occurrence: None)
  Receive Date: 20100609
  Receipt Date: 20100527
  Transmission Date: 20101027
  Serious: Yes (Other)
  Sender: FDA-Public Use
  Company Number: DE-SANOFI-AVENTIS-2010SA028598

PATIENT
  Age: 65 Year
  Sex: Female
  Weight: 59 kg

DRUGS (10)
  1. MULTAQ [Suspect]
     Route: 048
     Dates: start: 20100506, end: 20100517
  2. MULTAQ [Suspect]
     Route: 048
     Dates: start: 20100506, end: 20100517
  3. MULTAQ [Suspect]
     Route: 048
     Dates: start: 20100519
  4. MULTAQ [Suspect]
     Route: 048
     Dates: start: 20100519
  5. TRIAMTERENE AND HYDROCHLOROTHIAZIDE [Concomitant]
     Indication: DRUG USE FOR UNKNOWN INDICATION
     Dosage: DOSAGE: 1/2-0-0
     Route: 065
  6. METOPROLOL TARTRATE [Concomitant]
     Indication: DRUG USE FOR UNKNOWN INDICATION
     Dosage: DOSAGE: 1/2-0-0
     Route: 065
  7. REKAWAN [Concomitant]
     Indication: DRUG USE FOR UNKNOWN INDICATION
     Route: 065
  8. TRAZODONE HYDROCHLORIDE [Concomitant]
     Indication: DRUG USE FOR UNKNOWN INDICATION
     Route: 065
  9. MAGNESIUM VERLA TABLET [Concomitant]
     Indication: DRUG USE FOR UNKNOWN INDICATION
     Dosage: DOSAGE: 1-1-1
     Route: 065
  10. MARCUMAR [Concomitant]
     Indication: DRUG USE FOR UNKNOWN INDICATION
     Dosage: AFTER INR
     Route: 065

REACTIONS (10)
  - ABDOMINAL DISCOMFORT [None]
  - ANGINA PECTORIS [None]
  - BRADYCARDIA [None]
  - DYSPNOEA [None]
  - FREQUENT BOWEL MOVEMENTS [None]
  - HEADACHE [None]
  - HEART SOUNDS ABNORMAL [None]
  - NAUSEA [None]
  - OEDEMA PERIPHERAL [None]
  - TREMOR [None]
